FAERS Safety Report 9361431 (Version 2)
Quarter: 2013Q3

REPORT INFORMATION
  Report Type: Report from Study
  Country: US (occurrence: US)
  Receive Date: 20130621
  Receipt Date: 20130817
  Transmission Date: 20140515
  Serious: Yes (Other)
  Sender: FDA-Public Use
  Company Number: US-ROCHE-1239562

PATIENT
  Age: 49 Year
  Sex: Female

DRUGS (8)
  1. XOLAIR [Suspect]
     Indication: ASTHMA
     Route: 058
  2. SYMBICORT [Concomitant]
     Route: 065
     Dates: start: 20090608
  3. PREMARIN [Concomitant]
     Route: 065
     Dates: start: 20090608
  4. PROVENTIL [Concomitant]
     Dosage: 2 PUFFS OID PRN
     Route: 065
     Dates: start: 20090608
  5. EFFEXOR [Concomitant]
     Dosage: QD
     Route: 065
     Dates: start: 20090608
  6. SINGULAIR [Concomitant]
     Route: 065
     Dates: start: 20090608
  7. ADVAIR [Concomitant]
     Dosage: 250-50 MCG PER DOSE
     Route: 065
     Dates: start: 20090608
  8. SPIRIVA [Concomitant]
     Route: 065
     Dates: start: 20090608

REACTIONS (3)
  - Dyspnoea [Recovering/Resolving]
  - Chest discomfort [Recovering/Resolving]
  - Bronchitis [Unknown]
